FAERS Safety Report 7770706-5 (Version None)
Quarter: 2011Q3

REPORT INFORMATION
  Report Type: 
  Country: None (occurrence: None)
  Receive Date: 20110922
  Receipt Date: 20110629
  Transmission Date: 20111222
  Serious: Yes (Life-Threatening, Hospitalization)
  Sender: FDA-Public Use
  Company Number: US-ASTRAZENECA-2011SE39718

PATIENT
  Age: 5128 Day
  Sex: Female
  Weight: 54.4 kg

DRUGS (2)
  1. SEROQUEL [Suspect]
     Indication: BIPOLAR DISORDER
     Route: 048
     Dates: start: 20101101, end: 20110601
  2. PROZAC [Concomitant]

REACTIONS (2)
  - DRUG DOSE OMISSION [None]
  - SUICIDE ATTEMPT [None]
